FAERS Safety Report 7552654-9 (Version None)
Quarter: 2011Q2

REPORT INFORMATION
  Report Type: 
  Country: None (occurrence: None)
  Receive Date: 20110616
  Receipt Date: 20110615
  Transmission Date: 20111010
  Serious: Yes (Hospitalization, Other)
  Sender: FDA-Public Use
  Company Number: US-UCBSA-035444

PATIENT
  Age: 20 Year
  Sex: Female

DRUGS (5)
  1. AMITRIPTYLINE HYDROCHLORIDE [Concomitant]
     Dosage: QHS
  2. THORAZINE [Concomitant]
     Indication: HICCUPS
     Dosage: QHS
  3. ONDANSETRON [Concomitant]
     Indication: NAUSEA
  4. VIMPAT [Suspect]
     Dosage: ON VIMPAT 400MG FOR ABOUT SIX MONTHS PRIOR TO HOSPITALIZATION
  5. KEPPRA [Suspect]

REACTIONS (2)
  - VENTRICULAR EXTRASYSTOLES [None]
  - VAGAL NERVE STIMULATOR IMPLANTATION [None]
